FAERS Safety Report 19368872 (Version 3)
Quarter: 2022Q2

REPORT INFORMATION
  Report Type: Spontaneous
  Country: US (occurrence: None)
  Receive Date: 20210602
  Receipt Date: 20220630
  Transmission Date: 20220721
  Serious: Yes (Other)
  Sender: FDA-Public Use
  Company Number: US-ROCHE-2673933

PATIENT
  Sex: Female

DRUGS (2)
  1. OCREVUS [Suspect]
     Active Substance: OCRELIZUMAB
     Indication: Multiple sclerosis
     Dosage: 300 MG/ 10 ML
     Route: 042
     Dates: start: 20200211
  2. OCREVUS [Suspect]
     Active Substance: OCRELIZUMAB
     Dosage: 300 MG/ 10 ML
     Route: 042
     Dates: start: 202009

REACTIONS (3)
  - Multiple sclerosis relapse [Unknown]
  - Drug ineffective [Unknown]
  - Feeling hot [Unknown]
